FAERS Safety Report 19993621 (Version 3)
Quarter: 2021Q4

REPORT INFORMATION
  Report Type: Spontaneous
  Country: GB (occurrence: GB)
  Receive Date: 20211026
  Receipt Date: 20211231
  Transmission Date: 20220303
  Serious: Yes (Other)
  Sender: FDA-Public Use
  Company Number: GB-GLAXOSMITHKLINE-GB2021GSK203110

PATIENT
  Age: 39 Year
  Sex: Female
  Weight: 33.5 kg

DRUGS (23)
  1. CLARITHROMYCIN [Suspect]
     Active Substance: CLARITHROMYCIN
     Indication: Mycobacterium avium complex infection
     Dosage: 500 MG, BID
     Route: 042
     Dates: start: 20210610
  2. CLARITHROMYCIN [Suspect]
     Active Substance: CLARITHROMYCIN
     Indication: Mycobacterium avium complex infection
  3. ACETAMINOPHEN [Suspect]
     Active Substance: ACETAMINOPHEN
     Indication: Pain
     Dosage: 500 MG, QID
     Route: 042
     Dates: start: 202106, end: 20210924
  4. ZIDOVUDINE [Suspect]
     Active Substance: ZIDOVUDINE
     Indication: HIV infection
     Dosage: 30 MG, 4 HOURLY
     Route: 042
     Dates: start: 20210909, end: 20210924
  5. AMIKACIN [Concomitant]
     Active Substance: AMIKACIN
     Indication: Mycobacterium avium complex infection
     Dosage: 500 MG, QD
     Route: 042
     Dates: start: 20210501
  6. CIPROFLOXACIN [Concomitant]
     Active Substance: CIPROFLOXACIN
     Indication: Mycobacterium avium complex infection
     Dosage: 500 MG, BID (PLUS EARLIER COURSE)
     Route: 048
     Dates: start: 20210809
  7. CYCLIZINE [Concomitant]
     Active Substance: CYCLIZINE
     Indication: Product used for unknown indication
     Dosage: UNK(STOPPED)
     Route: 042
  8. CYCLIZINE [Concomitant]
     Active Substance: CYCLIZINE
     Dosage: STOPPED
     Route: 042
  9. CYCLIZINE [Concomitant]
     Active Substance: CYCLIZINE
     Dosage: STOPPED
     Route: 042
  10. DOCUSATE [Concomitant]
     Active Substance: DOCUSATE
     Indication: Constipation
     Dosage: 200 MG, BID
     Route: 048
     Dates: start: 202105
  11. DOLUTEGRAVIR [Concomitant]
     Active Substance: DOLUTEGRAVIR
     Indication: HIV infection
     Dosage: 50 MILLIGRAM, ONCE A DAY (50 MG, QD)
     Route: 048
     Dates: start: 202101
  12. DOLUTEGRAVIR [Concomitant]
     Active Substance: DOLUTEGRAVIR
     Dosage: 50 MG, QD
     Route: 048
     Dates: start: 202101, end: 20210901
  13. ETHAMBUTOL [Concomitant]
     Active Substance: ETHAMBUTOL HYDROCHLORIDE
     Indication: Mycobacterium avium complex infection
     Dosage: 500 MG, QD
     Route: 048
     Dates: start: 20210501
  14. FENTANYL [Concomitant]
     Active Substance: FENTANYL
     Indication: Abdominal pain
     Dosage: 12 UG/HR, 72 HOURLY
     Route: 062
     Dates: start: 20210906
  15. EMTRICITABINE\TENOFOVIR DISOPROXIL [Concomitant]
     Active Substance: EMTRICITABINE\TENOFOVIR DISOPROXIL
     Indication: HIV infection
     Dosage: 25 MILLIGRAM, ONCE A DAY(25 MG, QD)
     Route: 048
     Dates: start: 202101, end: 20210901
  16. HYDROCORTISONE [Concomitant]
     Active Substance: HYDROCORTISONE
     Indication: Abdominal pain
     Dosage: 40 MG, BID
     Route: 042
     Dates: start: 20210913
  17. HYDROCORTISONE [Concomitant]
     Active Substance: HYDROCORTISONE
     Indication: Immune reconstitution inflammatory syndrome
  18. LACTULOSE [Concomitant]
     Active Substance: LACTULOSE
     Indication: Constipation
     Dosage: 20 ML, TDS
     Route: 048
     Dates: start: 202106
  19. MIRTAZAPINE [Concomitant]
     Active Substance: MIRTAZAPINE
     Indication: Antidepressant therapy
     Dosage: 15 MILLIGRAM, ONCE A DAY(15 MG, QD)
     Route: 048
     Dates: start: 20210801, end: 20210903
  20. MORPHINE [Concomitant]
     Active Substance: MORPHINE
     Indication: Abdominal pain
     Dosage: 2.5 MG, PRN
     Route: 042
     Dates: start: 202105
  21. NYSTATIN [Concomitant]
     Active Substance: NYSTATIN
     Indication: Oral candidiasis
     Dosage: 1 ML, QID
     Route: 048
     Dates: start: 202108
  22. OMEPRAZOLE [Concomitant]
     Active Substance: OMEPRAZOLE
     Indication: Gastrointestinal disorder prophylaxis
     Dosage: 20 MG, QD
     Route: 042
     Dates: start: 20210913
  23. SULFAMETHOXAZOLE\TRIMETHOPRIM [Concomitant]
     Active Substance: SULFAMETHOXAZOLE\TRIMETHOPRIM
     Indication: Prophylaxis
     Dosage: 480 MG, QD(INTRAVENOUS AND ORAL)
     Route: 048
     Dates: start: 202105

REACTIONS (1)
  - Alanine aminotransferase increased [Recovering/Resolving]

NARRATIVE: CASE EVENT DATE: 20210914
